FAERS Safety Report 20402623 (Version 2)
Quarter: 2022Q1

REPORT INFORMATION
  Report Type: Spontaneous
  Country: US (occurrence: US)
  Receive Date: 20220131
  Receipt Date: 20220201
  Transmission Date: 20220423
  Serious: Yes (Other)
  Sender: FDA-Public Use
  Company Number: US-ABBVIE-21K-163-4109773-00

PATIENT

DRUGS (2)
  1. HUMIRA [Suspect]
     Active Substance: ADALIMUMAB
     Indication: Product used for unknown indication
     Route: 058
  2. SOMAVERT [Suspect]
     Active Substance: PEGVISOMANT
     Indication: Acromegaly
     Route: 058
     Dates: start: 20210930

REACTIONS (7)
  - Hypothalamo-pituitary disorder [Recovered/Resolved]
  - Off label use [Unknown]
  - Faeces discoloured [Recovered/Resolved]
  - Steatorrhoea [Recovered/Resolved]
  - Blood glucose increased [Not Recovered/Not Resolved]
  - Psoriasis [Unknown]
  - Cholelithiasis [Unknown]

NARRATIVE: CASE EVENT DATE: 20210201
